FAERS Safety Report 10948129 (Version 1)
Quarter: 2015Q1

REPORT INFORMATION
  Report Type: Spontaneous
  Country: JP (occurrence: JP)
  Receive Date: 20150324
  Receipt Date: 20150324
  Transmission Date: 20150721
  Serious: Yes (Death)
  Sender: FDA-Public Use
  Company Number: JP-GLAXOSMITHKLINE-JP2015JPN025955

PATIENT
  Sex: Male

DRUGS (1)
  1. SAMITREL [Suspect]
     Active Substance: ATOVAQUONE
     Indication: PROPHYLAXIS
     Dosage: UNK
     Route: 048
     Dates: start: 20141202, end: 20150225

REACTIONS (5)
  - Condition aggravated [Unknown]
  - Dysphagia [Unknown]
  - Disease progression [Fatal]
  - Immune system disorder [Unknown]
  - Viral infection [Unknown]
